APPROVED DRUG PRODUCT: CHLORPROMAZINE HYDROCHLORIDE
Active Ingredient: CHLORPROMAZINE HYDROCHLORIDE
Strength: 200MG
Dosage Form/Route: TABLET;ORAL
Application: A209755 | Product #005 | TE Code: AB
Applicant: AMNEAL PHARMACEUTICALS CO GMBH
Approved: Sep 10, 2018 | RLD: No | RS: No | Type: RX